FAERS Safety Report 4297471-0 (Version None)
Quarter: 2004Q1

REPORT INFORMATION
  Report Type: 
  Country: None (occurrence: None)
  Receive Date: 20040213
  Receipt Date: 20040203
  Transmission Date: 20041129
  Serious: Yes (Death, Hospitalization)
  Sender: FDA-Public Use
  Company Number: 03P-163-0234359-00

PATIENT
  Age: 68 Year
  Sex: Male
  Weight: 86.16 kg

DRUGS (10)
  1. HUMIRA [Suspect]
     Indication: RHEUMATOID ARTHRITIS
     Dosage: 40 MG, 1 IN 2 WK, SUBCUTANEOUS
     Route: 058
     Dates: start: 20030401, end: 20030101
  2. TREXALL [Suspect]
     Indication: RHEUMATOID ARTHRITIS
     Dosage: 7.5 MG, 1 IN 1 WK
     Dates: start: 20020101, end: 20030606
  3. PREDNISONE [Concomitant]
  4. COUMADIN [Concomitant]
  5. LANSOPRAZOLE [Concomitant]
  6. FOLTEX [Concomitant]
  7. FUROSEMIDE [Concomitant]
  8. ACETYLSALICYLIC ACID SRT [Concomitant]
  9. ATORVASTATIN [Concomitant]
  10. TOPROL-XL [Concomitant]

REACTIONS (19)
  - BRONCHOSCOPY ABNORMAL [None]
  - CANDIDA PNEUMONIA [None]
  - CANDIDA SEROLOGY POSITIVE [None]
  - CARDIAC ARREST [None]
  - HAEMATEMESIS [None]
  - HEPARIN-INDUCED THROMBOCYTOPENIA [None]
  - HYPERKALAEMIA [None]
  - HYPOXIA [None]
  - INTERSTITIAL LUNG DISEASE [None]
  - MOUTH HAEMORRHAGE [None]
  - NAUSEA [None]
  - PHLEBOTHROMBOSIS [None]
  - PNEUMONIA [None]
  - PRURITUS [None]
  - RESPIRATORY DISTRESS [None]
  - RESPIRATORY FAILURE [None]
  - SUPRAVENTRICULAR TACHYCARDIA [None]
  - VENOUS THROMBOSIS LIMB [None]
  - VOMITING [None]
